FAERS Safety Report 6518543-3 (Version None)
Quarter: 2009Q4

REPORT INFORMATION
  Report Type: 
  Country: None (occurrence: None)
  Receive Date: 20091226
  Receipt Date: 20091217
  Transmission Date: 20100525
  Serious: Yes (Hospitalization)
  Sender: FDA-Public Use
  Company Number: GB-JNJFOC-20091203488

PATIENT
  Age: 26 Year
  Sex: Male

DRUGS (3)
  1. PARACETAMOL [Suspect]
     Route: 048
  2. PARACETAMOL [Suspect]
     Indication: DRUG USE FOR UNKNOWN INDICATION
     Dosage: 50 TABLETS
     Route: 048
  3. ALCOHOL [Suspect]
     Indication: DRUG USE FOR UNKNOWN INDICATION
     Dosage: 1 BT.OF SPIRITS/DAY FOR 10 DAYS, 8 PINTS OF BEER AND 8 ^NIPS^ OF WHISKEY.

REACTIONS (4)
  - HAEMATEMESIS [None]
  - INTENTIONAL OVERDOSE [None]
  - LIVER INJURY [None]
  - PARAESTHESIA [None]
